FAERS Safety Report 14190003 (Version 1)
Quarter: 2017Q4

REPORT INFORMATION
  Report Type: Spontaneous
  Country: TR (occurrence: TR)
  Receive Date: 20171115
  Receipt Date: 20171115
  Transmission Date: 20180321
  Serious: Yes (Other)
  Sender: FDA-Public Use
  Company Number: TR-009507513-1711TUR005328

PATIENT
  Age: 4 Year
  Sex: Female

DRUGS (2)
  1. SINGULAIR [Suspect]
     Active Substance: MONTELUKAST SODIUM
     Indication: COUGH
  2. SINGULAIR [Suspect]
     Active Substance: MONTELUKAST SODIUM
     Indication: RHINITIS ALLERGIC
     Dosage: 1 DF, AT NIGHT
     Route: 048
     Dates: end: 20171108

REACTIONS (8)
  - Chest pain [Recovering/Resolving]
  - Dyskinesia [Recovering/Resolving]
  - Hallucination [Recovering/Resolving]
  - Hyperventilation [Recovering/Resolving]
  - Musculoskeletal stiffness [Recovering/Resolving]
  - Dyspnoea [Recovering/Resolving]
  - Depressed mood [Recovering/Resolving]
  - Gaze palsy [Recovering/Resolving]
